FAERS Safety Report 18249212 (Version 6)
Quarter: 2021Q1

REPORT INFORMATION
  Report Type: Other
  Country: AT (occurrence: AT)
  Receive Date: 20200910
  Receipt Date: 20210309
  Transmission Date: 20210419
  Serious: Yes (Hospitalization, Other)
  Sender: FDA-Public Use
  Company Number: AT-ROCHE-2215193

PATIENT
  Age: 63 Year
  Sex: Female
  Weight: 80.4 kg

DRUGS (40)
  1. TRASTUZUMAB EMTANSINE [Suspect]
     Active Substance: ADO-TRASTUZUMAB EMTANSINE
     Indication: BREAST CANCER METASTATIC
     Route: 042
     Dates: start: 20190306, end: 20190909
  2. PARACETAMOL [Concomitant]
     Active Substance: ACETAMINOPHEN
     Dates: start: 20200506
  3. FENTANYL. [Concomitant]
     Active Substance: FENTANYL
     Dates: start: 20200515
  4. KCL [Concomitant]
     Active Substance: POTASSIUM CHLORIDE
     Dates: start: 20170429
  5. NERIFORTE [Concomitant]
     Indication: SKIN FISSURES
     Dates: start: 20200430, end: 20200515
  6. TRASTUZUMAB. [Suspect]
     Active Substance: TRASTUZUMAB
     Indication: BREAST CANCER METASTATIC
     Dosage: MOST RECENT DOSE PRIOR TO THE EVENTS: 10/AUG/2017
     Route: 041
     Dates: start: 20170224, end: 20170224
  7. BLEOMYCIN [Suspect]
     Active Substance: BLEOMYCIN SULFATE
     Dosage: DRUG WAS DISCONTINUED AS PLANNED NUMBER OF CYCLES COMPLETED.
     Route: 042
     Dates: start: 20210105, end: 20210105
  8. EMEND [Concomitant]
     Active Substance: APREPITANT
     Dates: start: 20200428, end: 20200430
  9. KALIORAL [Concomitant]
     Dates: start: 20200427, end: 20200428
  10. TAZONAM [Concomitant]
     Active Substance: TAZOBACTAM
     Indication: STREPTOCOCCAL SEPSIS
     Dates: start: 20200423, end: 20200504
  11. FORTECORTIN [Concomitant]
     Active Substance: DEXAMETHASONE
     Indication: BRAIN OEDEMA
     Dates: start: 20200422, end: 20200505
  12. PASPERTIN [Concomitant]
     Dates: start: 20200506
  13. FORTECORTIN [Concomitant]
     Active Substance: DEXAMETHASONE
     Dates: start: 20171004, end: 20171006
  14. BLEOMYCIN [Suspect]
     Active Substance: BLEOMYCIN SULFATE
     Indication: BREAST CANCER METASTATIC
     Dosage: DRUG WAS DISCONTINUED AS PLANNED NUMBER OF CYCLES COMPLETED.
     Route: 042
     Dates: start: 20200519, end: 20200519
  15. NOVALGIN (AUSTRIA) [Concomitant]
     Dates: start: 20170329, end: 20180807
  16. LIXIANA [Concomitant]
     Active Substance: EDOXABAN TOSYLATE
     Dates: start: 20191120, end: 20200608
  17. ZOFRAN [Concomitant]
     Active Substance: ONDANSETRON HYDROCHLORIDE
     Dates: start: 20200506
  18. FUROSEMID [Concomitant]
     Active Substance: FUROSEMIDE
     Dosage: ONGOING = NOT CHECKED
     Dates: start: 20170810, end: 20171213
  19. MEPILEX [Concomitant]
     Active Substance: SILICON
     Indication: SKIN FISSURES
     Dosage: ONGOING = NOT CHECKED
     Dates: start: 20200521, end: 20200602
  20. VINORELBINE [Suspect]
     Active Substance: VINORELBINE TARTRATE
     Indication: BREAST CANCER METASTATIC
     Route: 042
     Dates: start: 20200422
  21. PREGABALIN. [Concomitant]
     Active Substance: PREGABALIN
     Dates: start: 20190821
  22. VITAMINS WITH MINERALS [Concomitant]
     Active Substance: MINERALS\VITAMINS
     Dates: start: 20170203
  23. XGEVA [Concomitant]
     Active Substance: DENOSUMAB
     Dates: start: 20170202
  24. EUTHYROX [Concomitant]
     Active Substance: LEVOTHYROXINE SODIUM
     Dates: start: 20170303
  25. FULVESTRANT. [Suspect]
     Active Substance: FULVESTRANT
     Indication: BREAST CANCER METASTATIC
     Dosage: MOST RECENT DOSE PRIOR TO THE EVENT LYMPH NODE METASTATIS AXILLA AND PORT A CATH INFECTION: 16/NOV/2
     Route: 030
     Dates: start: 20171002, end: 20171115
  26. OLIVE OIL [Concomitant]
     Active Substance: OLIVE OIL
     Indication: PARONYCHIA
     Dates: start: 20191002, end: 20200512
  27. TAVANIC [Concomitant]
     Active Substance: LEVOFLOXACIN
     Dates: start: 20200506, end: 20200512
  28. OLEOVIT [RETINOL] [Concomitant]
     Dates: start: 20170329
  29. LEUKICHTAN (AUSTRIA) [Concomitant]
     Dates: start: 20200430, end: 20200515
  30. CAPECITABINE. [Suspect]
     Active Substance: CAPECITABINE
     Indication: BREAST CANCER METASTATIC
     Dosage: MOST RECENT DOSE PRIOR TO THE EVENT LYMPH NODE METASTATIS AXILLA AND PORT A CATH INFECTION: 08/JAN/2
     Route: 048
     Dates: start: 20191002, end: 20200107
  31. DOCETAXEL. [Suspect]
     Active Substance: DOCETAXEL
     Indication: BREAST CANCER METASTATIC
     Dosage: MOST RECENT DOSE PRIOR TO THE EVENTS: 09/JUN/2017
     Route: 042
     Dates: start: 20170224, end: 20170317
  32. BETAISODONA [Concomitant]
     Active Substance: POVIDONE-IODINE
     Indication: SKIN FISSURES
     Dosage: ONGOING = NOT CHECKED
     Dates: start: 20200430, end: 20200515
  33. PANTOPRAZOL [Concomitant]
     Active Substance: PANTOPRAZOLE SODIUM
     Dates: start: 20170722, end: 20180327
  34. PERTUZUMAB. [Suspect]
     Active Substance: PERTUZUMAB
     Indication: BREAST CANCER METASTATIC
     Dosage: MOST RECENT DOSE PRIOR TO THE EVENT WORSENING OF BRAIN METASTASES: 17/MAR/2017?MOST RECENT DOSE PRIO
     Route: 042
     Dates: start: 20170224, end: 20170224
  35. LAPATINIB [Suspect]
     Active Substance: LAPATINIB
     Indication: BREAST CANCER METASTATIC
     Dosage: MOST RECENT DOSE PRIOR TO THE EVENT LYMPH NODE METASTATIS AXILLA AND PORT A CATH INFECTION: 08/JAN/2
     Route: 048
     Dates: start: 20191002, end: 20200107
  36. FENTANYL. [Concomitant]
     Active Substance: FENTANYL
     Dates: start: 20200515
  37. PANTOPRAZOL [Concomitant]
     Active Substance: PANTOPRAZOLE SODIUM
     Dates: start: 20200506, end: 20200519
  38. FUROSEMID [Concomitant]
     Active Substance: FUROSEMIDE
     Dates: start: 20170810
  39. LOVENOX [Concomitant]
     Active Substance: ENOXAPARIN SODIUM
     Dates: start: 20170224, end: 20171130
  40. FORTECORTIN [Concomitant]
     Active Substance: DEXAMETHASONE
     Dosage: ONGOING = NOT CHECKED
     Dates: start: 20171007, end: 20171008

REACTIONS (11)
  - Metastases to lymph nodes [Not Recovered/Not Resolved]
  - Vascular device infection [Recovered/Resolved]
  - Pseudomonal sepsis [Recovered/Resolved]
  - Streptococcal sepsis [Recovered/Resolved]
  - Brain oedema [Not Recovered/Not Resolved]
  - Metastases to central nervous system [Not Recovered/Not Resolved]
  - Nausea [Recovered/Resolved]
  - Vomiting [Recovered/Resolved]
  - Fatigue [Not Recovered/Not Resolved]
  - Pleural effusion [Not Recovered/Not Resolved]
  - Back pain [Recovered/Resolved]

NARRATIVE: CASE EVENT DATE: 20170921
